FAERS Safety Report 17245565 (Version 1)
Quarter: 2020Q1

REPORT INFORMATION
  Report Type: Spontaneous
  Country: CH (occurrence: CH)
  Receive Date: 20200108
  Receipt Date: 20200108
  Transmission Date: 20200409
  Serious: Yes (Other)
  Sender: FDA-Public Use
  Company Number: CH-BRISTOL-MYERS SQUIBB COMPANY-BMS-2020-000923

PATIENT
  Age: 43 Year
  Sex: Female

DRUGS (2)
  1. OPDIVO [Suspect]
     Active Substance: NIVOLUMAB
     Indication: CARCINOID TUMOUR OF THE CAECUM
     Dosage: 69 MILLIGRAM, Q3CYCLES
     Route: 041
     Dates: start: 201901, end: 20190312
  2. YERVOY [Suspect]
     Active Substance: IPILIMUMAB
     Indication: CARCINOID TUMOUR OF THE CAECUM
     Dosage: 207 MILLIGRAM, Q3CYCLES
     Route: 041
     Dates: start: 201901, end: 20190312

REACTIONS (2)
  - Intentional product use issue [Unknown]
  - Meningitis aseptic [Recovered/Resolved]

NARRATIVE: CASE EVENT DATE: 201903
